FAERS Safety Report 26079633 (Version 1)
Quarter: 2025Q4

REPORT INFORMATION
  Report Type: Spontaneous
  Country: CN (occurrence: CN)
  Receive Date: 20251123
  Receipt Date: 20251123
  Transmission Date: 20260118
  Serious: Yes (Other)
  Sender: PACIRA
  Company Number: CN-ORG100016242-2025000472

PATIENT

DRUGS (7)
  1. BUPIVACAINE [Suspect]
     Active Substance: BUPIVACAINE
     Indication: Nerve block
     Route: 065
  2. SALINE [Suspect]
     Active Substance: SODIUM CHLORIDE
     Indication: Nerve block
     Dosage: FINAL VOLUME OF 30 ML
     Route: 065
  3. PROPOFOL [Concomitant]
     Active Substance: PROPOFOL
     Indication: Induction of anaesthesia
     Dosage: 2-2.5 MG/KG
     Route: 065
  4. SUFENTANIL [Concomitant]
     Active Substance: SUFENTANIL
     Indication: Induction of anaesthesia
     Dosage: 0.3-0.5 ?G/KG
     Route: 065
  5. SUFENTANIL [Concomitant]
     Active Substance: SUFENTANIL
     Indication: Induction of anaesthesia
     Dosage: 0.1-0.2 ?G/KG
     Route: 065
  6. Sevoflurane inhalation [Concomitant]
     Indication: Maintenance of anaesthesia
     Dosage: TITRATED TO A BISPECTRAL INDEX OF 40 TO 60
     Route: 050
  7. REMIFENTANIL [Concomitant]
     Active Substance: REMIFENTANIL
     Indication: Analgesic therapy
     Dosage: 0.05-0.2 ?G/KG/MIN
     Route: 050

REACTIONS (4)
  - Hypothermia [Unknown]
  - Hypoxia [Unknown]
  - Bradycardia [Unknown]
  - Hypotension [Unknown]
